FAERS Safety Report 24990449 (Version 1)
Quarter: 2025Q1

REPORT INFORMATION
  Report Type: Spontaneous
  Country: US (occurrence: None)
  Receive Date: 20250219
  Receipt Date: 20250219
  Transmission Date: 20250409
  Serious: Yes (Other)
  Sender: FDA-CTU
  Company Number: None

PATIENT
  Age: 69 Year
  Sex: Female
  Weight: 70.4 kg

DRUGS (16)
  1. PROMETHAZINE [Suspect]
     Active Substance: PROMETHAZINE HYDROCHLORIDE
     Indication: Product used for unknown indication
     Route: 048
     Dates: start: 20241031, end: 20241031
  2. CIPROFLOXACIN [Suspect]
     Active Substance: CIPROFLOXACIN
     Dosage: FREQUENCY : TWICE A DAY;?
     Route: 048
  3. Doxycycline hyclate 100 mg BID x 10 days [Concomitant]
     Dates: start: 20241011, end: 20241022
  4. fluconazole 100 mg PO DAILY [Concomitant]
     Dates: start: 20241024, end: 20241027
  5. carbidopa-levodopa 25-100 mg tablet TID [Concomitant]
  6. Famotidine 40 mg tablet daily [Concomitant]
  7. Methylprednisolone 4 mg dosepack [Concomitant]
     Dates: start: 20241030, end: 20241104
  8. Nystatin 100,000 unit/g cream 15 day supply [Concomitant]
     Dates: start: 20241025
  9. Quetiapine 50 mg BID and quetiapine XR 200 mg at bedtime [Concomitant]
  10. valproic acid solution 250 mg PO TID [Concomitant]
  11. multivitamin tablet daily [Concomitant]
  12. azithromycin 250 mg PO daily [Concomitant]
  13. benztropine 0.5 mg tablets BID [Concomitant]
  14. Bevespi Aerosphere 9 mcg/4.8 mcg [Concomitant]
  15. TRESIBA [Concomitant]
     Active Substance: INSULIN DEGLUDEC
  16. loratadine 10 mg tablet  PO DAILY [Concomitant]

REACTIONS (2)
  - Rash pruritic [None]
  - Vasculitis [None]

NARRATIVE: CASE EVENT DATE: 20241031
